FAERS Safety Report 21192920 (Version 2)
Quarter: 2022Q3

REPORT INFORMATION
  Report Type: Report from Study
  Country: US (occurrence: US)
  Receive Date: 20220810
  Receipt Date: 20220912
  Transmission Date: 20221027
  Serious: No
  Sender: FDA-Public Use
  Company Number: US-BIOVITRUM-2022US06659

PATIENT
  Sex: Male

DRUGS (2)
  1. KINERET [Suspect]
     Active Substance: ANAKINRA
     Indication: Rheumatoid arthritis
     Dates: start: 202004
  2. KINERET [Suspect]
     Active Substance: ANAKINRA
     Dosage: 100 MG/0.67ML 7/PK
     Dates: start: 20200506

REACTIONS (4)
  - COVID-19 [Unknown]
  - Needle issue [Unknown]
  - Product dose omission issue [Unknown]
  - Incorrect dose administered [Unknown]
